FAERS Safety Report 16875600 (Version 1)
Quarter: 2019Q4

REPORT INFORMATION
  Report Type: Not Available
  Country: US (occurrence: US)
  Receive Date: 20191002
  Receipt Date: 20191002
  Transmission Date: 20200122
  Serious: No
  Sender: FDA-Public Use
  Company Number: US-NEUROCRINE BIOSCIENCES INC.-2019NBI02759

PATIENT
  Age: 69 Year
  Sex: Female

DRUGS (9)
  1. INGREZZA [Suspect]
     Active Substance: VALBENAZINE
     Indication: TARDIVE DYSKINESIA
     Route: 048
  2. QUETIAPINE. [Concomitant]
     Active Substance: QUETIAPINE
  3. INGREZZA [Suspect]
     Active Substance: VALBENAZINE
     Route: 048
     Dates: start: 201909
  4. DULOXETINE. [Concomitant]
     Active Substance: DULOXETINE
  5. BUPROPION. [Concomitant]
     Active Substance: BUPROPION
  6. BALSALAZIDE [Concomitant]
     Active Substance: BALSALAZIDE
  7. SIMVASTATIN. [Concomitant]
     Active Substance: SIMVASTATIN
  8. LITHIUM. [Concomitant]
     Active Substance: LITHIUM
  9. OMEPRAZOLE. [Concomitant]
     Active Substance: OMEPRAZOLE

REACTIONS (3)
  - Off label use [Unknown]
  - Drug ineffective [None]
  - Somnolence [Unknown]

NARRATIVE: CASE EVENT DATE: 201909
